FAERS Safety Report 18916355 (Version 2)
Quarter: 2021Q1

REPORT INFORMATION
  Report Type: Spontaneous
  Country: CA (occurrence: CA)
  Receive Date: 20210219
  Receipt Date: 20210302
  Transmission Date: 20210420
  Serious: Yes (Hospitalization, Other)
  Sender: FDA-Public Use
  Company Number: CA-PFIZER INC-2021170755

PATIENT
  Age: 11 Year
  Sex: Male

DRUGS (32)
  1. SALBUTAMOL [Suspect]
     Active Substance: ALBUTEROL
     Dosage: 100 MICROGRAM, Q4HR
     Route: 065
  2. CELECOXIB. [Suspect]
     Active Substance: CELECOXIB
     Indication: PAIN MANAGEMENT
     Dosage: 100 MILLIGRAM, BID
     Route: 048
  3. GABAPENTIN. [Suspect]
     Active Substance: GABAPENTIN
     Indication: PAIN MANAGEMENT
     Dosage: 600 MILLIGRAM, TID
     Route: 048
  4. HYDROMORPHONE HYDROCHLORIDE. [Suspect]
     Active Substance: HYDROMORPHONE HYDROCHLORIDE
     Indication: PAIN MANAGEMENT
     Dosage: UNK
     Route: 065
  5. FISH OIL [Suspect]
     Active Substance: FISH OIL
     Dosage: UNK, QD
     Route: 048
  6. MACROGOL [Suspect]
     Active Substance: POLYETHYLENE GLYCOLS
     Dosage: 30 MILLIGRAM, BID
     Route: 048
  7. METHADONE [Suspect]
     Active Substance: METHADONE HYDROCHLORIDE
     Dosage: 2 MILLIGRAM, TID
     Route: 048
  8. MONTELUKAST [Suspect]
     Active Substance: MONTELUKAST SODIUM
     Dosage: 10 MILLIGRAM, QD
     Route: 048
  9. RANITIDINE HYDROCHLORIDE. [Suspect]
     Active Substance: RANITIDINE HYDROCHLORIDE
     Dosage: 150 MILLIGRAM, QD
     Route: 048
  10. LORAZEPAM. [Suspect]
     Active Substance: LORAZEPAM
     Indication: PAIN MANAGEMENT
     Dosage: 0.5 MILLIGRAM
     Route: 060
  11. LORAZEPAM. [Suspect]
     Active Substance: LORAZEPAM
     Indication: MUSCLE SPASMS
  12. ARIPIPRAZOLE. [Suspect]
     Active Substance: ARIPIPRAZOLE
     Dosage: 2 MILLIGRAM, TID
     Route: 048
  13. CLOBAZAM. [Suspect]
     Active Substance: CLOBAZAM
     Dosage: 20 MILLIGRAM, BID
     Route: 048
  14. FLUTICASONE. [Suspect]
     Active Substance: FLUTICASONE
     Dosage: 250 MICROGRAM, QD
     Route: 048
  15. PHENOBARBITAL. [Suspect]
     Active Substance: PHENOBARBITAL
     Dosage: 30 MILLIGRAM, BID
     Route: 048
  16. PANTOPRAZOLE [Suspect]
     Active Substance: PANTOPRAZOLE
     Dosage: 40 MILLIGRAM, QD
     Route: 048
  17. FLUOXETINE HCL [Suspect]
     Active Substance: FLUOXETINE HYDROCHLORIDE
     Dosage: 20 MILLIGRAM, QD
     Route: 048
  18. LEUPRORELIN [Suspect]
     Active Substance: LEUPROLIDE ACETATE
     Dosage: 7.5 MILLIGRAM, MONTHLY
     Route: 030
  19. CLONIDINE. [Suspect]
     Active Substance: CLONIDINE
     Dosage: 0.05 MILLIGRAM, QD
     Route: 048
  20. MELATONIN [Suspect]
     Active Substance: MELATONIN
     Indication: SLEEP DEFICIT
     Dosage: 10 MILLIGRAM, QD
     Route: 048
  21. BISACODYL. [Suspect]
     Active Substance: BISACODYL
     Dosage: 5 MILLIGRAM, QD
     Route: 048
  22. CLONIDINE. [Suspect]
     Active Substance: CLONIDINE
     Dosage: 0.1 MILLIGRAM
     Route: 048
  23. KETOROLAC [KETOROLAC TROMETHAMINE] [Suspect]
     Active Substance: KETOROLAC TROMETHAMINE
     Indication: PAIN
     Dosage: 20 MILLIGRAM, Q6HR
     Route: 048
  24. LORAZEPAM. [Suspect]
     Active Substance: LORAZEPAM
     Indication: SEIZURE
     Dosage: 2 MILLIGRAM
     Route: 060
  25. HYDROXYCHLOROQUINE SULFATE. [Suspect]
     Active Substance: HYDROXYCHLOROQUINE SULFATE
     Dosage: 400 MILLIGRAM, QD
     Route: 048
  26. DIPHENHYDRAMINE [DIPHENHYDRAMINE HYDROCHLORIDE] [Suspect]
     Active Substance: DIPHENHYDRAMINE HYDROCHLORIDE
     Indication: PRURITUS
     Dosage: 12.5 MILLIGRAM, Q6HR
     Route: 048
  27. BACLOFEN. [Suspect]
     Active Substance: BACLOFEN
     Dosage: 20 MILLIGRAM, TID
     Route: 048
  28. VITAMIN C [Suspect]
     Active Substance: ASCORBIC ACID
     Dosage: 1500 MILLIGRAM, QD
     Route: 048
  29. VITAMIN D3 [Suspect]
     Active Substance: CHOLECALCIFEROL
     Dosage: 200 INTERNATIONAL UNIT, QD
     Route: 048
  30. DIMENHYDRINATE. [Suspect]
     Active Substance: DIMENHYDRINATE
     Indication: CONSTIPATION
     Dosage: 25 MILLIGRAM, QD
     Route: 048
  31. METHOCARBAMOL. [Suspect]
     Active Substance: METHOCARBAMOL
     Dosage: UNK
     Route: 065
  32. METHOCARBAMOL/PARACETAMOL [Suspect]
     Active Substance: ACETAMINOPHEN\METHOCARBAMOL
     Dosage: UNK, BID
     Route: 048

REACTIONS (7)
  - Off label use [Unknown]
  - Drug dependence [Recovered/Resolved]
  - Drug abuse [Recovered/Resolved]
  - Product use issue [Unknown]
  - Drug ineffective [Recovered/Resolved]
  - Product prescribing error [Unknown]
  - Respiratory depression [Recovered/Resolved]
